FAERS Safety Report 4569556-2 (Version None)
Quarter: 2005Q1

REPORT INFORMATION
  Report Type: 
  Country: None (occurrence: None)
  Receive Date: 20050201
  Receipt Date: 20050124
  Transmission Date: 20050727
  Serious: Yes (Life-Threatening)
  Sender: FDA-Public Use
  Company Number: 2005AC00148

PATIENT
  Age: 0 Day
  Sex: Male

DRUGS (1)
  1. MEPIVACAINE [Suspect]
     Indication: ANAESTHESIA

REACTIONS (10)
  - ANAESTHETIC COMPLICATION [None]
  - CONVULSION NEONATAL [None]
  - DRUG EXPOSURE DURING PREGNANCY [None]
  - DRUG TOXICITY [None]
  - HYPOTONIA NEONATAL [None]
  - LABOUR COMPLICATION [None]
  - MOVEMENT DISORDER [None]
  - MYDRIASIS [None]
  - NEONATAL DISORDER [None]
  - TONIC CONVULSION [None]
